FAERS Safety Report 11844328 (Version 2)
Quarter: 2016Q1

REPORT INFORMATION
  Report Type: Spontaneous
  Country: US (occurrence: US)
  Receive Date: 20151217
  Receipt Date: 20160115
  Transmission Date: 20160526
  Serious: No
  Sender: FDA-Public Use
  Company Number: US-ASTRAZENECA-2015SF24369

PATIENT
  Sex: Male

DRUGS (1)
  1. BRILINTA [Suspect]
     Active Substance: TICAGRELOR
     Indication: ACUTE CORONARY SYNDROME
     Route: 048
     Dates: end: 20160108

REACTIONS (5)
  - Intentional product misuse [Unknown]
  - Haemorrhage [Unknown]
  - Epistaxis [Unknown]
  - Contusion [Unknown]
  - Blood disorder [Unknown]

NARRATIVE: CASE EVENT DATE: 20150806
